FAERS Safety Report 14923194 (Version 1)
Quarter: 2018Q2

REPORT INFORMATION
  Report Type: Spontaneous
  Country: FR (occurrence: FR)
  Receive Date: 20180522
  Receipt Date: 20180522
  Transmission Date: 20180711
  Serious: Yes (Other)
  Sender: FDA-Public Use
  Company Number: FR-MERCK KGAA-2048224

PATIENT
  Sex: Female

DRUGS (1)
  1. NOVOTHYROX [Suspect]
     Active Substance: LEVOTHYROXINE SODIUM
     Indication: PRODUCT USED FOR UNKNOWN INDICATION

REACTIONS (9)
  - Fatigue [None]
  - Myalgia [None]
  - Malaise [None]
  - Social avoidant behaviour [None]
  - Fracture [None]
  - Alopecia [None]
  - Fall [None]
  - Loss of personal independence in daily activities [None]
  - Insomnia [None]
